FAERS Safety Report 4424712-9 (Version None)
Quarter: 2004Q3

REPORT INFORMATION
  Report Type: 
  Country: None (occurrence: None)
  Receive Date: 20040809
  Receipt Date: 20420719
  Transmission Date: 20050211
  Serious: No
  Sender: FDA-Public Use
  Company Number: 2004AC00181

PATIENT
  Age: 64 Year
  Sex: Male
  Weight: 71 kg

DRUGS (6)
  1. DIPRIVAN [Suspect]
     Indication: ANAESTHESIA
     Dosage: 2500 MG DAILY IV
     Route: 042
  2. REMIFENTANIL [Concomitant]
  3. MIVACURIUM [Concomitant]
  4. PANTOPRAZOLE [Concomitant]
  5. GLICLAZIDE [Concomitant]
  6. MIDAZOLAM [Concomitant]

REACTIONS (10)
  - DIABETES MELLITUS NON-INSULIN-DEPENDENT [None]
  - GASTRIC ULCER [None]
  - HAEMOGLOBIN DECREASED [None]
  - LACTIC ACIDOSIS [None]
  - METABOLIC ACIDOSIS [None]
  - POST PROCEDURAL PAIN [None]
  - PROSTATE CANCER [None]
  - PYREXIA [None]
  - TACHYCARDIA [None]
  - TROPONIN INCREASED [None]
